FAERS Safety Report 9507735 (Version 1)
Quarter: 2013Q1

REPORT INFORMATION
  Report Type: Spontaneous
  Country: US (occurrence: None)
  Receive Date: 20130305
  Receipt Date: 20130305
  Transmission Date: 20140127
  Serious: Yes (Other)
  Sender: FDA-Public Use
  Company Number: 163-21880-12051241

PATIENT
  Age: 80 Year
  Sex: Male

DRUGS (6)
  1. REVLIMID (LENALIDOMIDE) (25 MILLIGRAM, CAPSULES) [Suspect]
     Indication: NON-HODGKIN^S LYMPHOMA
     Dosage: DAILY X21 DAYS
     Route: 048
     Dates: start: 201201, end: 2012
  2. LEVOTHYROXINE (LEVOTHYROXINE) [Concomitant]
  3. SOTALOL [Concomitant]
  4. PRAVASTATIN (PRAVASTATIN) [Concomitant]
  5. RANEXA (RANOLAZINE) [Concomitant]
  6. VALACYCLOVIR (VALACICLOVIR HYDROCHLORIDE) [Concomitant]

REACTIONS (1)
  - No therapeutic response [None]
